FAERS Safety Report 15552022 (Version 2)
Quarter: 2018Q4

REPORT INFORMATION
  Report Type: Spontaneous
  Country: US (occurrence: US)
  Receive Date: 20181025
  Receipt Date: 20181101
  Transmission Date: 20190205
  Serious: Yes (Hospitalization, Other)
  Sender: FDA-Public Use
  Company Number: US-PFIZER INC-2018432698

PATIENT
  Age: 29 Year
  Sex: Male
  Weight: 63.49 kg

DRUGS (3)
  1. XANAX [Suspect]
     Active Substance: ALPRAZOLAM
     Indication: ANXIETY
     Dosage: 0.5 MG, UNK
  2. XANAX [Interacting]
     Active Substance: ALPRAZOLAM
     Indication: PANIC ATTACK
     Dosage: 1 MG, 3X/DAY
  3. XANAX [Interacting]
     Active Substance: ALPRAZOLAM
     Indication: STRESS
     Dosage: 2 MG, AS NEEDED (THREE TIMES A DAY)
     Route: 048

REACTIONS (6)
  - Anxiety [Unknown]
  - Hypertension [Unknown]
  - Heart rate increased [Unknown]
  - Drug effect decreased [Unknown]
  - Panic attack [Recovering/Resolving]
  - Drug interaction [Unknown]

NARRATIVE: CASE EVENT DATE: 2018
